FAERS Safety Report 6743918-7 (Version None)
Quarter: 2010Q2

REPORT INFORMATION
  Report Type: 
  Country: None (occurrence: None)
  Receive Date: 20100527
  Receipt Date: 20100518
  Transmission Date: 20101027
  Serious: Yes (Death, Other)
  Sender: FDA-Public Use
  Company Number: US-AMGEN-QUU410822

PATIENT
  Sex: Male

DRUGS (4)
  1. NPLATE [Suspect]
     Indication: THROMBOCYTOPENIA
     Dates: start: 20090511, end: 20091020
  2. CORTICOSTEROIDS [Concomitant]
     Dates: start: 20090428
  3. RITUXIMAB [Concomitant]
     Dates: start: 20090228
  4. NEUMEGA [Concomitant]
     Dates: start: 20090420

REACTIONS (2)
  - NON-HODGKIN'S LYMPHOMA [None]
  - PANCYTOPENIA [None]
